FAERS Safety Report 9539402 (Version 2)
Quarter: 2013Q3

REPORT INFORMATION
  Report Type: Spontaneous
  Country: JP (occurrence: JP)
  Receive Date: 20130920
  Receipt Date: 20130930
  Transmission Date: 20140515
  Serious: Yes (Hospitalization, Other)
  Sender: FDA-Public Use
  Company Number: JP-PFIZER INC-2013269894

PATIENT
  Age: 68 Year
  Sex: Female

DRUGS (2)
  1. CELECOX [Suspect]
     Dosage: 200 MG, DAILY
     Route: 048
     Dates: start: 20120704, end: 20120720
  2. TIZANIDINE HYDROCHLORIDE [Suspect]
     Dosage: UNK
     Route: 048
     Dates: start: 20120704, end: 20120720

REACTIONS (2)
  - Interstitial lung disease [Recovered/Resolved]
  - Drug eruption [Recovering/Resolving]
